FAERS Safety Report 5129638-3 (Version None)
Quarter: 2006Q4

REPORT INFORMATION
  Report Type: 
  Country: None (occurrence: None)
  Receive Date: 20061018
  Receipt Date: 20060403
  Transmission Date: 20070319
  Serious: Yes (Hospitalization)
  Sender: FDA-Public Use
  Company Number: GB-BAYER-200610411BNE

PATIENT
  Age: 61 Year
  Sex: Male

DRUGS (8)
  1. SORAFENIB [Suspect]
     Indication: RENAL CELL CARCINOMA STAGE UNSPECIFIED
     Dosage: TOTAL DAILY DOSE: 800 MG
     Route: 048
     Dates: start: 20050603, end: 20050615
  2. SORAFENIB [Suspect]
     Route: 048
     Dates: start: 20050628, end: 20050809
  3. ATENOLOL [Concomitant]
     Indication: HYPERTENSION
     Dates: start: 19840101
  4. BENDROFLUAZIDE [Concomitant]
     Indication: HYPERTENSION
     Dates: start: 20030101, end: 20050616
  5. VENLAFAXIINE HCL [Concomitant]
     Indication: DEPRESSION
     Dates: start: 20050217
  6. AMOXICILLIN [Concomitant]
     Indication: COUGH
     Dates: start: 20050421, end: 20050427
  7. CETIRIZINE HCL [Concomitant]
     Indication: RASH
     Dates: start: 20050615, end: 20050726
  8. ACICLOVIR CREAM [Concomitant]
     Indication: RASH
     Dates: start: 20050616, end: 20050726

REACTIONS (4)
  - LETHARGY [None]
  - MALAISE [None]
  - RASH [None]
  - RENAL IMPAIRMENT [None]
